FAERS Safety Report 12836868 (Version 2)
Quarter: 2016Q4

REPORT INFORMATION
  Report Type: Report from Study
  Country: US (occurrence: US)
  Receive Date: 20161011
  Receipt Date: 20161209
  Transmission Date: 20170207
  Serious: Yes (Hospitalization)
  Sender: FDA-Public Use
  Company Number: US-B.I. PHARMACEUTICALS,INC./RIDGEFIELD-2016-BI-49557BP

PATIENT
  Sex: Male

DRUGS (2)
  1. OFEV [Suspect]
     Active Substance: NINTEDANIB
     Dosage: STRENGTH- 100MG
     Route: 048
     Dates: start: 20160726
  2. OFEV [Suspect]
     Active Substance: NINTEDANIB
     Indication: IDIOPATHIC PULMONARY FIBROSIS
     Route: 048
     Dates: start: 201606

REACTIONS (10)
  - Dizziness [Unknown]
  - Gastrooesophageal reflux disease [Unknown]
  - Cough [Unknown]
  - Vomiting [Unknown]
  - Nausea [Unknown]
  - Abdominal pain upper [Unknown]
  - Blood potassium increased [Unknown]
  - Productive cough [Unknown]
  - Dyspnoea [Unknown]
  - Diarrhoea [Unknown]
